FAERS Safety Report 12173496 (Version 3)
Quarter: 2016Q1

REPORT INFORMATION
  Report Type: Spontaneous
  Country: US (occurrence: US)
  Receive Date: 20160311
  Receipt Date: 20160317
  Transmission Date: 20160526
  Serious: No
  Sender: FDA-Public Use
  Company Number: US-GALDERMA-US15002681

PATIENT
  Age: 56 Year
  Sex: Female

DRUGS (3)
  1. PHILOSOPHY CREAM WASH [Concomitant]
     Indication: THERAPEUTIC SKIN CARE TOPICAL
     Route: 061
  2. BOOTS NO7 [Concomitant]
     Indication: DRY SKIN PROPHYLAXIS
     Route: 061
  3. TRI-LUMA [Suspect]
     Active Substance: FLUOCINOLONE ACETONIDE\HYDROQUINONE\TRETINOIN
     Indication: PIGMENTATION DISORDER
     Route: 061
     Dates: start: 201504, end: 20150509

REACTIONS (5)
  - Skin burning sensation [Recovered/Resolved]
  - Rash erythematous [Not Recovered/Not Resolved]
  - Pain of skin [Recovered/Resolved]
  - Erythema [Not Recovered/Not Resolved]
  - Condition aggravated [Not Recovered/Not Resolved]

NARRATIVE: CASE EVENT DATE: 201505
